FAERS Safety Report 21083673 (Version 1)
Quarter: 2022Q3

REPORT INFORMATION
  Report Type: Spontaneous
  Country: US (occurrence: None)
  Receive Date: 20220714
  Receipt Date: 20220714
  Transmission Date: 20221026
  Serious: Yes (Hospitalization)
  Sender: FDA-Public Use
  Company Number: None

PATIENT
  Sex: Male
  Weight: 76.7 kg

DRUGS (9)
  1. ABIRATERONE ACETATE [Suspect]
     Active Substance: ABIRATERONE ACETATE
     Indication: Prostate cancer
     Dosage: FREQUENCY : DAILY;?
     Route: 048
  2. PREDNISONE [Concomitant]
     Active Substance: PREDNISONE
  3. IBUPROFEN [Concomitant]
     Active Substance: IBUPROFEN
  4. VITAMIN D [Concomitant]
     Active Substance: VITAMIN D NOS
  5. FERROUS SULFATE [Concomitant]
     Active Substance: FERROUS SULFATE
  6. OLMESARTAN MEDOXOMIL [Concomitant]
     Active Substance: OLMESARTAN MEDOXOMIL
  7. ONDANSETRON HCL [Concomitant]
     Active Substance: ONDANSETRON HYDROCHLORIDE
  8. Ativn [Concomitant]
  9. BICALUTAMIDE [Concomitant]
     Active Substance: BICALUTAMIDE

REACTIONS (1)
  - Pneumonia [None]
